FAERS Safety Report 17880930 (Version 4)
Quarter: 2021Q4

REPORT INFORMATION
  Report Type: Spontaneous
  Country: GB (occurrence: GB)
  Receive Date: 20200610
  Receipt Date: 20211103
  Transmission Date: 20220303
  Serious: Yes (Other)
  Sender: FDA-Public Use
  Company Number: GB-LDELTA-NLLD0028814

PATIENT
  Age: 61 Year
  Sex: Male

DRUGS (4)
  1. SUNITINIB MALATE [Interacting]
     Active Substance: SUNITINIB MALATE
     Indication: Renal cancer metastatic
     Dosage: 37.5 MG, 1X/DAY
  2. SUNITINIB MALATE [Interacting]
     Active Substance: SUNITINIB MALATE
     Dosage: 50MG, CYCLIC, 1X PER DAY WEEKS 1-4 OF A 6 WEEK CYCLE
  3. CLOZAPINE [Interacting]
     Active Substance: CLOZAPINE
     Dosage: UNK
     Route: 048
     Dates: start: 20100621
  4. NITROFURANTOIN [Interacting]
     Active Substance: NITROFURANTOIN
     Indication: Urinary tract infection
     Dosage: UNK
     Dates: start: 20200527

REACTIONS (11)
  - Platelet count decreased [Not Recovered/Not Resolved]
  - Contraindicated product administered [Not Recovered/Not Resolved]
  - Mental impairment [Not Recovered/Not Resolved]
  - Full blood count decreased [Unknown]
  - Neutrophil count decreased [Recovering/Resolving]
  - Urinary tract infection [Unknown]
  - Neutropenia [Recovering/Resolving]
  - White blood cell count decreased [Recovering/Resolving]
  - Epistaxis [Unknown]
  - Drug interaction [Not Recovered/Not Resolved]
  - Neoplasm progression [Not Recovered/Not Resolved]

NARRATIVE: CASE EVENT DATE: 20180314
